FAERS Safety Report 8936265 (Version 1)
Quarter: 2012Q4

REPORT INFORMATION
  Report Type: 
  Country: US (occurrence: US)
  Receive Date: 20121130
  Receipt Date: 20121130
  Transmission Date: 20130627
  Serious: No
  Sender: FDA-Public Use
  Company Number: US-009507513-1211USA012004

PATIENT
  Sex: Female

DRUGS (2)
  1. PEGINTRON [Suspect]
     Indication: HEPATITIS C
     Dosage: 80/0.5
     Dates: start: 20121112
  2. REBETOL [Suspect]

REACTIONS (3)
  - Vomiting [Unknown]
  - Drug dose omission [Unknown]
  - Product quality issue [Unknown]
